FAERS Safety Report 12779856 (Version 2)
Quarter: 2016Q4

REPORT INFORMATION
  Report Type: Report from Study
  Country: US (occurrence: US)
  Receive Date: 20160926
  Receipt Date: 20161107
  Transmission Date: 20170207
  Serious: No
  Sender: FDA-Public Use
  Company Number: US-009507513-1609USA010832

PATIENT

DRUGS (1)
  1. CUBICIN [Suspect]
     Active Substance: DAPTOMYCIN
     Dosage: UNK

REACTIONS (5)
  - Product preparation error [Unknown]
  - Product quality issue [Unknown]
  - Product reconstitution issue [Unknown]
  - Incorrect dose administered [Unknown]
  - No adverse event [Unknown]
